FAERS Safety Report 25715885 (Version 1)
Quarter: 2025Q3

REPORT INFORMATION
  Report Type: Spontaneous
  Country: US (occurrence: None)
  Receive Date: 20250821
  Receipt Date: 20250821
  Transmission Date: 20251021
  Serious: Yes (Other)
  Sender: FDA-CTU
  Company Number: None

PATIENT
  Age: 62 Year
  Sex: Female
  Weight: 72.9 kg

DRUGS (22)
  1. MORPHINE [Suspect]
     Active Substance: MORPHINE
     Indication: Procedural pain
     Dosage: OTHER QUANTITY : 2 TABLET(S);?FREQUENCY : TWICE A DAY;?
     Route: 048
     Dates: end: 20250812
  2. Power wheelchair [Concomitant]
  3. C-Pap with oxygen [Concomitant]
  4. gas x {over the counter} [Concomitant]
  5. ATENOLOL [Concomitant]
     Active Substance: ATENOLOL
  6. LEVOTHYROXINE [Concomitant]
     Active Substance: LEVOTHYROXINE
  7. ONDANSETRON [Concomitant]
     Active Substance: ONDANSETRON
  8. Provistatin [Concomitant]
  9. RAMIPRIL [Concomitant]
     Active Substance: RAMIPRIL
  10. Trellegy [Concomitant]
  11. PROAIR HFA [Concomitant]
     Active Substance: ALBUTEROL SULFATE
  12. VITAMIN D3 [Concomitant]
     Active Substance: CHOLECALCIFEROL
  13. MORPHINE [Concomitant]
     Active Substance: MORPHINE
  14. OXYCODONE [Concomitant]
     Active Substance: OXYCODONE
  15. TIZANIDINE [Concomitant]
     Active Substance: TIZANIDINE
  16. OMEPRAZOLE [Concomitant]
     Active Substance: OMEPRAZOLE
  17. Femotidine [Concomitant]
  18. Azelistine [Concomitant]
  19. GAS-X [Concomitant]
     Active Substance: DIMETHICONE
  20. OMEPRAZOLE [Concomitant]
     Active Substance: OMEPRAZOLE
  21. Femotidine [Concomitant]
  22. VITAMIN D3 [Concomitant]
     Active Substance: CHOLECALCIFEROL

REACTIONS (4)
  - Withdrawal syndrome [None]
  - SARS-CoV-2 test positive [None]
  - Victim of abuse [None]
  - Drug dependence [None]

NARRATIVE: CASE EVENT DATE: 20250812
